FAERS Safety Report 5573215-7 (Version None)
Quarter: 2007Q4

REPORT INFORMATION
  Report Type: 
  Country: None (occurrence: None)
  Receive Date: 20071220
  Receipt Date: 20071128
  Transmission Date: 20080405
  Serious: Yes (Hospitalization)
  Sender: FDA-Public Use
  Company Number: 200710085LA

PATIENT
  Age: 19 Year
  Sex: Female

DRUGS (1)
  1. MICROVLAR [Suspect]
     Indication: ORAL CONTRACEPTION
     Dosage: ORAL
     Route: 048
     Dates: start: 20040201, end: 20040501

REACTIONS (2)
  - CEREBELLAR TUMOUR [None]
  - NEOPLASM RECURRENCE [None]
